FAERS Safety Report 22189854 (Version 13)
Quarter: 2024Q2

REPORT INFORMATION
  Report Type: Report from Study
  Country: US (occurrence: US)
  Receive Date: 20230410
  Receipt Date: 20240607
  Transmission Date: 20240716
  Serious: No
  Sender: FDA-Public Use
  Company Number: US-002147023-NVSC2023US079745

PATIENT
  Age: 43 Year
  Sex: Male

DRUGS (3)
  1. KESIMPTA [Suspect]
     Active Substance: OFATUMUMAB
     Indication: Product used for unknown indication
     Dosage: UNK, QW
     Route: 065
     Dates: start: 20230303
  2. KESIMPTA [Suspect]
     Active Substance: OFATUMUMAB
     Dosage: UNK
     Route: 065
     Dates: start: 20230403
  3. KESIMPTA [Suspect]
     Active Substance: OFATUMUMAB
     Dosage: UNK, QMO
     Route: 065

REACTIONS (15)
  - Gait inability [Unknown]
  - Lethargy [Recovering/Resolving]
  - Illness [Unknown]
  - Muscle fatigue [Recovering/Resolving]
  - Asthenia [Unknown]
  - Myalgia [Recovering/Resolving]
  - Nasopharyngitis [Unknown]
  - Pyrexia [Unknown]
  - Chills [Unknown]
  - Pain [Unknown]
  - Headache [Unknown]
  - Fatigue [Recovering/Resolving]
  - Injection site pain [Unknown]
  - Cough [Unknown]
  - Upper respiratory tract infection [Unknown]

NARRATIVE: CASE EVENT DATE: 20230403
